FAERS Safety Report 25778593 (Version 2)
Quarter: 2025Q3

REPORT INFORMATION
  Report Type: Spontaneous
  Country: US (occurrence: US)
  Receive Date: 20250909
  Receipt Date: 20250911
  Transmission Date: 20251020
  Serious: No
  Sender: CHATTEM
  Company Number: US-OPELLA-2025OHG026749

PATIENT
  Sex: Male

DRUGS (1)
  1. ALLEGRA ALLERGY [Suspect]
     Active Substance: FEXOFENADINE HYDROCHLORIDE
     Indication: Hypersensitivity
     Route: 065

REACTIONS (6)
  - Rhinorrhoea [Unknown]
  - Eye discharge [Unknown]
  - Nasal congestion [Unknown]
  - Somnolence [Unknown]
  - Wrong technique in product usage process [Unknown]
  - Drug ineffective [Unknown]
